FAERS Safety Report 10044121 (Version 2)
Quarter: 2014Q1

REPORT INFORMATION
  Report Type: Report from Study
  Country: CA (occurrence: CA)
  Receive Date: 20140328
  Receipt Date: 20140328
  Transmission Date: 20141002
  Serious: Yes (Other)
  Sender: FDA-Public Use
  Company Number: CA-JNJFOC-20140213531

PATIENT
  Sex: Female
  Weight: 57 kg

DRUGS (1)
  1. REMICADE [Suspect]
     Indication: CROHN^S DISEASE
     Route: 042

REACTIONS (6)
  - Hernia [Unknown]
  - Haematochezia [Unknown]
  - Gait disturbance [Unknown]
  - Arthralgia [Unknown]
  - Crohn^s disease [Unknown]
  - Feeling abnormal [Unknown]
